FAERS Safety Report 23298197 (Version 1)
Quarter: 2023Q4

REPORT INFORMATION
  Report Type: Spontaneous
  Country: FR (occurrence: FR)
  Receive Date: 20231214
  Receipt Date: 20231214
  Transmission Date: 20240109
  Serious: Yes (Other)
  Sender: FDA-Public Use
  Company Number: None

PATIENT
  Age: 49 Year
  Sex: Female
  Weight: 56 kg

DRUGS (1)
  1. PEMBROLIZUMAB [Suspect]
     Active Substance: PEMBROLIZUMAB
     Dosage: 200 MG, 1 TIME PER CYCLE (ONCE)
     Route: 042
     Dates: start: 20230309, end: 20230309

REACTIONS (1)
  - Infective keratitis [Recovered/Resolved]

NARRATIVE: CASE EVENT DATE: 20230323
